FAERS Safety Report 25897734 (Version 1)
Quarter: 2025Q4

REPORT INFORMATION
  Report Type: Report from Study
  Country: GB (occurrence: GB)
  Receive Date: 20251008
  Receipt Date: 20251008
  Transmission Date: 20260117
  Serious: Yes (Hospitalization)
  Sender: ABBVIE
  Company Number: GB-ABBVIE-6491667

PATIENT
  Sex: Male

DRUGS (2)
  1. SKYRIZI [Suspect]
     Active Substance: RISANKIZUMAB-RZAA
     Indication: Crohn^s disease
     Dosage: DOSE:1A ?SKYRIZI 360MG/2.4ML SOLUTION FOR INJECTION CARTRIDGE ON-BODY DEVICE
     Route: 058
  2. SKYRIZI [Suspect]
     Active Substance: RISANKIZUMAB-RZAA
     Dosage: DOSE:1A ?SKYRIZI 360MG/2.4ML SOLUTION FOR INJECTION CARTRIDGE ON-BODY DEVICE
     Route: 058

REACTIONS (2)
  - Pulmonary thrombosis [Unknown]
  - Malaise [Unknown]
